FAERS Safety Report 9469485 (Version 5)
Quarter: 2015Q1

REPORT INFORMATION
  Report Type: Report from Study
  Country: US (occurrence: US)
  Receive Date: 20130822
  Receipt Date: 20150227
  Transmission Date: 20150721
  Serious: Yes (Hospitalization)
  Sender: FDA-Public Use
  Company Number: US-BIOGENIDEC-2013BI076360

PATIENT
  Age: 64 Year
  Sex: Male

DRUGS (10)
  1. TYSABRI [Suspect]
     Active Substance: NATALIZUMAB
     Indication: MULTIPLE SCLEROSIS
     Route: 042
     Dates: start: 20070611, end: 20080923
  2. TYSABRI [Suspect]
     Active Substance: NATALIZUMAB
     Indication: MULTIPLE SCLEROSIS
     Route: 042
     Dates: start: 20120130, end: 20130424
  3. LORATADINE. [Concomitant]
     Active Substance: LORATADINE
  4. PLAVIX [Concomitant]
     Active Substance: CLOPIDOGREL BISULFATE
     Indication: ISCHAEMIC HEART DISEASE PROPHYLAXIS
  5. SIMVASTATIN. [Concomitant]
     Active Substance: SIMVASTATIN
     Indication: CONSTIPATION
  6. DOCUSATE [Concomitant]
     Active Substance: DOCUSATE
  7. OMEPRAZOLE. [Concomitant]
     Active Substance: OMEPRAZOLE
  8. NITROGLYCERIN. [Concomitant]
     Active Substance: NITROGLYCERIN
     Indication: MYOCARDIAL INFARCTION
  9. TIZANADINE [Concomitant]
  10. METOPROLOL [Concomitant]
     Active Substance: METOPROLOL

REACTIONS (6)
  - Large intestine polyp [Recovered/Resolved]
  - Postoperative wound infection [Not Recovered/Not Resolved]
  - Blood test abnormal [Unknown]
  - Haematochezia [Unknown]
  - Device use error [Unknown]
  - Impaired healing [Unknown]

NARRATIVE: CASE EVENT DATE: 2013
